FAERS Safety Report 14290968 (Version 3)
Quarter: 2018Q2

REPORT INFORMATION
  Report Type: Report from Study
  Country: CN (occurrence: CN)
  Receive Date: 20171215
  Receipt Date: 20180521
  Transmission Date: 20180711
  Serious: Yes (Other)
  Sender: FDA-Public Use
  Company Number: CN-BAYER-2017-231702

PATIENT
  Sex: Male

DRUGS (1)
  1. STIVARGA [Suspect]
     Active Substance: REGORAFENIB
     Indication: COLORECTAL CANCER METASTATIC
     Dosage: 120 MG, QD
     Route: 048
     Dates: start: 20171115, end: 20180110

REACTIONS (5)
  - Blood pressure increased [None]
  - Off label use [None]
  - Arrhythmia [None]
  - Colorectal cancer metastatic [Unknown]
  - Interventional procedure [None]

NARRATIVE: CASE EVENT DATE: 20171115
